FAERS Safety Report 17818634 (Version 1)
Quarter: 2020Q2

REPORT INFORMATION
  Report Type: Spontaneous
  Country: ES (occurrence: ES)
  Receive Date: 20200522
  Receipt Date: 20200522
  Transmission Date: 20200714
  Serious: Yes (Hospitalization, Other)
  Sender: FDA-Public Use
  Company Number: ES-GILEAD-2020-0468438

PATIENT
  Age: 34 Year
  Sex: Female

DRUGS (1)
  1. YESCARTA [Suspect]
     Active Substance: AXICABTAGENE CILOLEUCEL
     Indication: DIFFUSE LARGE B-CELL LYMPHOMA REFRACTORY
     Dosage: 1 DOSAGE FORM; ^0.4-2X10^
     Route: 042
     Dates: start: 20200414, end: 20200414

REACTIONS (5)
  - Dysgraphia [Recovered/Resolved]
  - Dyslexia [Recovered/Resolved]
  - Infusion related reaction [Recovered/Resolved]
  - Bradyphrenia [Recovered/Resolved]
  - Cytokine release syndrome [Recovered/Resolved]

NARRATIVE: CASE EVENT DATE: 20200416
